FAERS Safety Report 8939116 (Version 1)
Quarter: 2012Q4

REPORT INFORMATION
  Report Type: 
  Country: US (occurrence: US)
  Receive Date: 20121203
  Receipt Date: 20121203
  Transmission Date: 20130627
  Serious: Yes (Other)
  Sender: FDA-Public Use
  Company Number: US-PFIZER INC-2012296555

PATIENT
  Age: 76 Year
  Sex: Male
  Weight: 89.8 kg

DRUGS (2)
  1. CELEBREX [Suspect]
     Indication: GOUTY ARTHRITIS
     Dosage: 200 mg, 1x/day
     Route: 048
  2. CELEBREX [Suspect]
     Dosage: 200 mg, 1x/day
     Route: 048
     Dates: start: 20121121, end: 20121126

REACTIONS (2)
  - Expired drug administered [Unknown]
  - Gouty arthritis [Unknown]
